FAERS Safety Report 9038845 (Version 1)
Quarter: 2013Q1

REPORT INFORMATION
  Report Type: Spontaneous
  Country: FR (occurrence: FR)
  Receive Date: 20130129
  Receipt Date: 20130129
  Transmission Date: 20140127
  Serious: Yes (Other)
  Sender: FDA-Public Use
  Company Number: FR-TEVA-382393ISR

PATIENT
  Sex: 0

DRUGS (1)
  1. LOSARTAN [Suspect]
     Dosage: LOSARTAN WAS WITHDRAWN AT 26 WEEKS GESTATION
     Route: 065

REACTIONS (2)
  - Renal aplasia [Unknown]
  - Oligohydramnios [Not Recovered/Not Resolved]
